FAERS Safety Report 8098803 (Version 5)
Quarter: 2013Q1

REPORT INFORMATION
  Report Type: Spontaneous
  Country: US (occurrence: US)
  Receive Date: 20110819
  Receipt Date: 20130315
  Transmission Date: 20140127
  Serious: Yes (Hospitalization)
  Sender: FDA-Public Use
  Company Number: US-ASTRAZENECA-2011SE26775

PATIENT
  Age: 60 Year
  Sex: Female

DRUGS (9)
  1. NEXIUM [Suspect]
     Route: 048
  2. ALPRAZOLAM [Concomitant]
  3. ZOLPIDEM TARTRATE [Concomitant]
  4. CLONIDINE [Concomitant]
  5. RISPERIDONE [Concomitant]
  6. BUPROPION HCL XL [Concomitant]
  7. SIMVASTATIN [Concomitant]
  8. OXYCODONE [Concomitant]
  9. ASPIRIN [Concomitant]

REACTIONS (12)
  - Aphagia [Unknown]
  - Gastrooesophageal reflux disease [Unknown]
  - Diverticulitis [Unknown]
  - Feeling abnormal [Unknown]
  - Sleep disorder due to a general medical condition [Unknown]
  - Mental disorder [Unknown]
  - Vocal cord disorder [Unknown]
  - Stress [Unknown]
  - Adverse event [Unknown]
  - Vomiting [Unknown]
  - Malaise [Unknown]
  - Drug dose omission [Unknown]
